FAERS Safety Report 8945280 (Version 3)
Quarter: 2013Q1

REPORT INFORMATION
  Report Type: Spontaneous
  Country: US (occurrence: US)
  Receive Date: 20121204
  Receipt Date: 20130204
  Transmission Date: 20140127
  Serious: No
  Sender: FDA-Public Use
  Company Number: US-AMGEN-USASP2012074328

PATIENT
  Age: 55 Year
  Sex: Female
  Weight: 90.7 kg

DRUGS (5)
  1. NEXIUM                             /01479302/ [Concomitant]
     Indication: GASTROOESOPHAGEAL REFLUX DISEASE
     Dosage: 40 G, DAILY
  2. LORTAB                             /00607101/ [Concomitant]
     Indication: PAIN
     Dosage: 10 G, QID PRN
  3. ENBREL [Suspect]
     Indication: RHEUMATOID ARTHRITIS
     Dosage: 50 MG, ONCE A WEEKLY
     Route: 058
     Dates: start: 20080930, end: 20121112
  4. SOMA [Concomitant]
     Indication: MYALGIA
     Dosage: 350 MG, TID PRN
     Route: 048
  5. FLEXERIL                           /00428402/ [Concomitant]
     Indication: INSOMNIA
     Dosage: 10 G, PRN
     Route: 048

REACTIONS (2)
  - Bronchitis [Recovered/Resolved]
  - Sinusitis [Recovered/Resolved]
